FAERS Safety Report 6960670-0 (Version None)
Quarter: 2010Q3

REPORT INFORMATION
  Report Type: 
  Country: None (occurrence: None)
  Receive Date: 20100901
  Receipt Date: 20100825
  Transmission Date: 20110219
  Serious: Yes (Other)
  Sender: FDA-Public Use
  Company Number: US-ROCHE-701944

PATIENT
  Sex: Female
  Weight: 59 kg

DRUGS (5)
  1. PEGASYS [Suspect]
     Indication: HEPATITIS C
     Dosage: PRE-FILLED SYRINGE
     Route: 058
     Dates: start: 20100501, end: 20100626
  2. RIBASPHERE [Suspect]
     Indication: HEPATITIS C
     Dosage: DOSE: 600/400
     Route: 048
     Dates: start: 20100501, end: 20100630
  3. MELOXICAM [Concomitant]
     Indication: ARTHRITIS
  4. LISINOPRIL [Concomitant]
     Indication: HYPERTENSION
  5. PROTONIX [Concomitant]

REACTIONS (21)
  - ABDOMINAL PAIN UPPER [None]
  - ANAEMIA [None]
  - CHILLS [None]
  - DEPRESSION [None]
  - DIARRHOEA [None]
  - DIZZINESS [None]
  - DYSPNOEA [None]
  - FAECES DISCOLOURED [None]
  - FATIGUE [None]
  - HYPERHIDROSIS [None]
  - INSOMNIA [None]
  - LABORATORY TEST ABNORMAL [None]
  - MYALGIA [None]
  - PRURITUS [None]
  - PYREXIA [None]
  - RASH [None]
  - TEARFULNESS [None]
  - THROMBOCYTOPENIA [None]
  - URTICARIA [None]
  - VISUAL IMPAIRMENT [None]
  - WHITE BLOOD CELL COUNT DECREASED [None]
